FAERS Safety Report 6127505-X (Version None)
Quarter: 2009Q1

REPORT INFORMATION
  Report Type: 
  Country: None (occurrence: None)
  Receive Date: 20090319
  Receipt Date: 20090312
  Transmission Date: 20090719
  Serious: Yes (Hospitalization)
  Sender: FDA-Public Use
  Company Number: LTI2009A00073

PATIENT
  Age: 76 Year
  Sex: Male

DRUGS (8)
  1. ACTOS [Suspect]
     Indication: TYPE 2 DIABETES MELLITUS
     Dosage: 15 MG (15 MG,1 - 2) ORAL
     Route: 048
     Dates: end: 20090102
  2. DIAMICRON (GLICLAZIDE) [Suspect]
     Indication: TYPE 2 DIABETES MELLITUS
     Dosage: 320 MG (160 MG,2 IN 1 D) ORAL
     Route: 048
     Dates: end: 20090102
  3. FOLIC ACID [Concomitant]
  4. PREVISCAN (FLUINDIONE) [Concomitant]
  5. BISOPROLOL FUMARATE [Concomitant]
  6. ALLOPURINOL [Concomitant]
  7. FUROSEMIDE [Concomitant]
  8. SPIRONOLACTONE [Concomitant]

REACTIONS (4)
  - ASTHENIA [None]
  - FALL [None]
  - HEPATIC CIRRHOSIS [None]
  - HYPOGLYCAEMIA [None]
